FAERS Safety Report 9478481 (Version 1)
Quarter: 2013Q3

REPORT INFORMATION
  Report Type: Spontaneous
  Country: FR (occurrence: FR)
  Receive Date: 20130827
  Receipt Date: 20130827
  Transmission Date: 20140515
  Serious: Yes (Other)
  Sender: FDA-Public Use
  Company Number: FR-ASTRAZENECA-2013SE64358

PATIENT
  Age: 14 Year
  Sex: Male

DRUGS (6)
  1. DIPRIVAN [Suspect]
     Dosage: AT 10H45, 250 MG, UNKNOWN FREQUENCY
     Route: 042
     Dates: start: 20121107, end: 20121107
  2. NAROPEINE [Suspect]
     Route: 050
     Dates: start: 20121107, end: 20121107
  3. ULTIVA [Suspect]
     Dosage: AT 10H45, 1 MG, ONCE/SINGLE ADMINISTRATION
     Route: 042
     Dates: start: 20121107, end: 20121107
  4. MIDAZOLAM PANPHARMA [Suspect]
     Indication: ANAESTHESIA
     Dosage: AT 10H45, 5 MG, ONCE/SINGLE ADMINISTRATION
     Route: 042
     Dates: start: 20121107, end: 20121107
  5. PROFENID [Suspect]
     Dosage: AT 11H00
     Dates: start: 20121107, end: 20121107
  6. PERFALGAN [Concomitant]
     Dosage: AT 11H00
     Dates: start: 20121107

REACTIONS (1)
  - Anaphylactic shock [Recovered/Resolved]
